FAERS Safety Report 4874721-0 (Version None)
Quarter: 2006Q1

REPORT INFORMATION
  Report Type: 
  Country: None (occurrence: None)
  Receive Date: 20060106
  Receipt Date: 20051005
  Transmission Date: 20060701
  Serious: Yes (Hospitalization, Disabling)
  Sender: FDA-Public Use
  Company Number: US-MERCK-0510USA04148

PATIENT
  Age: 55 Year
  Sex: Male
  Weight: 111 kg

DRUGS (2)
  1. VIOXX [Suspect]
     Indication: ARTHRITIS
     Route: 048
     Dates: start: 19990101, end: 20030827
  2. VIOXX [Suspect]
     Route: 048
     Dates: start: 19990101, end: 20030827

REACTIONS (3)
  - ANGINA PECTORIS [None]
  - DEPRESSION [None]
  - MYOCARDIAL INFARCTION [None]
